FAERS Safety Report 9540763 (Version 2)
Quarter: 2013Q3

REPORT INFORMATION
  Report Type: Spontaneous
  Country: JP (occurrence: JP)
  Receive Date: 20130920
  Receipt Date: 20130920
  Transmission Date: 20140515
  Serious: Yes (Hospitalization)
  Sender: FDA-Public Use
  Company Number: JP-ASTRAZENECA-2013SE64628

PATIENT
  Age: 70 Year
  Sex: Female

DRUGS (4)
  1. BLOPRESS [Suspect]
     Indication: HYPERTENSION
     Route: 048
     Dates: start: 201306, end: 201306
  2. INSULINS AND ANALOGUES [Concomitant]
     Indication: DIABETES MELLITUS
     Route: 050
  3. INSULINS AND ANALOGUES [Concomitant]
     Indication: DIABETES MELLITUS
     Route: 042
  4. DRUG USED IN DIABETES [Concomitant]
     Indication: DIABETES MELLITUS
     Route: 048

REACTIONS (3)
  - Nausea [Recovering/Resolving]
  - Labile blood pressure [Recovering/Resolving]
  - Hyperglycaemia [Recovering/Resolving]
